FAERS Safety Report 20209076 (Version 8)
Quarter: 2022Q4

REPORT INFORMATION
  Report Type: Report from Study
  Country: BR (occurrence: BR)
  Receive Date: 20211220
  Receipt Date: 20221229
  Transmission Date: 20230112
  Serious: Yes (Hospitalization)
  Sender: FDA-Public Use
  Company Number: BR-SERVIER DO BRASIL-S21013836

PATIENT

DRUGS (37)
  1. AZACITIDINE [Suspect]
     Active Substance: AZACITIDINE
     Indication: Acute myeloid leukaemia
     Dosage: 132 MG, QD
     Route: 058
     Dates: start: 20190408, end: 20190416
  2. AZACITIDINE [Suspect]
     Active Substance: AZACITIDINE
     Dosage: 135 MG, QD
     Route: 058
     Dates: start: 20190506, end: 20190514
  3. AZACITIDINE [Suspect]
     Active Substance: AZACITIDINE
     Dosage: 135.75 MG, QD
     Route: 058
     Dates: start: 20190603, end: 20190611
  4. AZACITIDINE [Suspect]
     Active Substance: AZACITIDINE
     Dosage: 138 MG, QD
     Route: 058
     Dates: start: 20190701, end: 20190806
  5. AZACITIDINE [Suspect]
     Active Substance: AZACITIDINE
     Dosage: 138.75 MG, QD
     Route: 058
     Dates: start: 20190826, end: 20190903
  6. AZACITIDINE [Suspect]
     Active Substance: AZACITIDINE
     Dosage: 138 MG, QD
     Route: 058
     Dates: start: 20190923, end: 20191001
  7. AZACITIDINE [Suspect]
     Active Substance: AZACITIDINE
     Dosage: 69.3 MG, QD
     Route: 058
     Dates: start: 20191104, end: 20191217
  8. AZACITIDINE [Suspect]
     Active Substance: AZACITIDINE
     Dosage: 139.5 MG, QD
     Route: 058
     Dates: start: 20200106, end: 20200114
  9. AZACITIDINE [Suspect]
     Active Substance: AZACITIDINE
     Dosage: 141 MG, QD
     Route: 058
     Dates: start: 20200203, end: 20200211
  10. AZACITIDINE [Suspect]
     Active Substance: AZACITIDINE
     Dosage: 69.75 MG, QD
     Route: 058
     Dates: start: 20200316, end: 20200324
  11. AZACITIDINE [Suspect]
     Active Substance: AZACITIDINE
     Dosage: 70.12 MG, QD
     Route: 058
     Dates: start: 20200427, end: 20200505
  12. AZACITIDINE [Suspect]
     Active Substance: AZACITIDINE
     Dosage: 70.87 MG, QD
     Route: 058
     Dates: start: 20200525, end: 20200630
  13. AZACITIDINE [Suspect]
     Active Substance: AZACITIDINE
     Dosage: 70.5 MG, QD
     Route: 058
     Dates: start: 20200720, end: 20200825
  14. AZACITIDINE [Suspect]
     Active Substance: AZACITIDINE
     Dosage: 70.12 MG, QD
     Route: 058
     Dates: start: 20200914, end: 20201021
  15. AZACITIDINE [Suspect]
     Active Substance: AZACITIDINE
     Dosage: 70.5 MG, QD
     Route: 058
     Dates: start: 20201109, end: 20201117
  16. AZACITIDINE [Suspect]
     Active Substance: AZACITIDINE
     Dosage: 70.12 MG, QD
     Route: 058
     Dates: start: 20201207, end: 20201215
  17. AZACITIDINE [Suspect]
     Active Substance: AZACITIDINE
     Dosage: 70.87 MG, QD
     Route: 058
     Dates: start: 20210104, end: 20210112
  18. AZACITIDINE [Suspect]
     Active Substance: AZACITIDINE
     Dosage: 70.12 MG, QD
     Route: 058
     Dates: start: 20210208, end: 20210216
  19. AZACITIDINE [Suspect]
     Active Substance: AZACITIDINE
     Dosage: 70.5 MG, QD
     Route: 058
     Dates: start: 20210308, end: 20210316
  20. AZACITIDINE [Suspect]
     Active Substance: AZACITIDINE
     Dosage: 70.1 MG, QD
     Route: 058
     Dates: start: 20210412, end: 20210420
  21. AZACITIDINE [Suspect]
     Active Substance: AZACITIDINE
     Dosage: 70.5 MG, QD
     Route: 058
     Dates: start: 20210510, end: 20210518
  22. AZACITIDINE [Suspect]
     Active Substance: AZACITIDINE
     Dosage: 70.1 MG, QD
     Route: 058
     Dates: start: 20210607, end: 20210615
  23. AZACITIDINE [Suspect]
     Active Substance: AZACITIDINE
     Dosage: 70.5 MG, QD
     Route: 058
     Dates: start: 20210705, end: 20210713
  24. AZACITIDINE [Suspect]
     Active Substance: AZACITIDINE
     Dosage: 69.75 MG, QD
     Route: 058
     Dates: start: 20210802, end: 20210810
  25. AZACITIDINE [Suspect]
     Active Substance: AZACITIDINE
     Dosage: 70.5 MG, QD
     Route: 058
     Dates: start: 20210830, end: 20210907
  26. AZACITIDINE [Suspect]
     Active Substance: AZACITIDINE
     Dosage: 70.1 MG, QD
     Route: 058
     Dates: start: 20210927, end: 20211005
  27. AZACITIDINE [Suspect]
     Active Substance: AZACITIDINE
     Dosage: 69.75 MG, QD
     Route: 058
     Dates: start: 20211025, end: 20211102
  28. AZACITIDINE [Suspect]
     Active Substance: AZACITIDINE
     Dosage: 70.12 MG, QD
     Route: 058
     Dates: start: 20211122, end: 20211130
  29. AZACITIDINE [Suspect]
     Active Substance: AZACITIDINE
     Dosage: 69 MG, QD
     Route: 058
     Dates: start: 20220112, end: 20220120
  30. AZACITIDINE [Suspect]
     Active Substance: AZACITIDINE
     Dosage: 69.38 MG, QD
     Route: 058
     Dates: start: 20220207, end: 20220215
  31. AZACITIDINE [Suspect]
     Active Substance: AZACITIDINE
     Dosage: 69 MG, QD
     Route: 058
     Dates: start: 20220307, end: 20220315
  32. AZACITIDINE [Suspect]
     Active Substance: AZACITIDINE
     Dosage: 69.38 MG, QD
     Route: 058
     Dates: start: 20220418, end: 20220426
  33. AZACITIDINE [Suspect]
     Active Substance: AZACITIDINE
     Dosage: 69.75 MG, QD
     Route: 058
     Dates: start: 20220530, end: 20220607
  34. AZACITIDINE [Suspect]
     Active Substance: AZACITIDINE
     Dosage: 69 MG, QD
     Route: 058
     Dates: start: 20220720, end: 20220728
  35. AZACITIDINE [Suspect]
     Active Substance: AZACITIDINE
     Dosage: 70.12 MG, QD
     Route: 058
     Dates: start: 20220822, end: 20221018
  36. OMEPRAZOLE [Concomitant]
     Active Substance: OMEPRAZOLE
     Indication: Gastritis prophylaxis
     Dosage: 20 MG, QD
     Route: 048
     Dates: start: 20190320
  37. ACYCLOVIR [Concomitant]
     Active Substance: ACYCLOVIR
     Indication: Herpes zoster
     Dosage: 800 MG, BID
     Route: 048
     Dates: start: 20190327

REACTIONS (1)
  - Abdominal pain lower [Recovered/Resolved]

NARRATIVE: CASE EVENT DATE: 20211209
